FAERS Safety Report 6493561-2 (Version None)
Quarter: 2009Q4

REPORT INFORMATION
  Report Type: 
  Country: None (occurrence: None)
  Receive Date: 20091214
  Receipt Date: 20091202
  Transmission Date: 20100525
  Serious: Yes (Other)
  Sender: FDA-Public Use
  Company Number: IL-TYCO HEALTHCARE/MALLINCKRODT-T200902241

PATIENT
  Age: 76 Year
  Sex: Male

DRUGS (8)
  1. MORPHINE [Suspect]
     Indication: PAIN
     Dosage: 1 MG/KG
     Route: 042
  2. MORPHINE [Suspect]
     Dosage: PCA BOLUS 1 MG
     Route: 042
  3. NITROGLYCERIN [Suspect]
     Indication: PAIN
     Dosage: UNK
     Route: 062
  4. MIDAZOLAM HCL [Concomitant]
     Indication: PREMEDICATION
     Dosage: 5 MG, SINGLE
  5. FENTANYL [Concomitant]
     Indication: ANAESTHESIA
     Dosage: 0.2 UG/KG
  6. PROPOFOL [Concomitant]
     Indication: ANAESTHESIA
     Dosage: 1 TO 1.5 MG/KG
  7. ROCURONIUM BROMIDE [Concomitant]
     Indication: ANAESTHESIA
     Dosage: 0.6 MG/KG
  8. ISOFLURANE [Concomitant]
     Indication: ANAESTHESIA

REACTIONS (2)
  - HAEMOGLOBIN DECREASED [None]
  - MYOCARDIAL INFARCTION [None]
